FAERS Safety Report 20013345 (Version 7)
Quarter: 2022Q2

REPORT INFORMATION
  Report Type: Spontaneous
  Country: GB (occurrence: GB)
  Receive Date: 20211029
  Receipt Date: 20220505
  Transmission Date: 20220721
  Serious: Yes (Hospitalization, Disabling, Other)
  Sender: FDA-Public Use
  Company Number: GB-PFIZER INC-202101424576

PATIENT
  Age: 52 Year
  Sex: Female
  Weight: 81 kg

DRUGS (9)
  1. LYRICA [Suspect]
     Active Substance: PREGABALIN
     Indication: Fibromyalgia
     Dosage: 50MG BD INCREASED UP TO 175MG BD
     Route: 048
     Dates: start: 201412
  2. LYRICA [Suspect]
     Active Substance: PREGABALIN
     Indication: Facial pain
     Dosage: 300 MG, 2X/DAY
     Route: 048
     Dates: end: 201904
  3. LYRICA [Suspect]
     Active Substance: PREGABALIN
     Dosage: 25 MG, ALTERNATE DAY (25MG EVERY OTHER DAY FOR NEARLY 2 WEEKS)
     Route: 048
  4. LYRICA [Suspect]
     Active Substance: PREGABALIN
     Dosage: UNK
     Route: 048
     Dates: end: 202004
  5. LOSARTAN [Concomitant]
     Active Substance: LOSARTAN
     Indication: Hypertension
     Dosage: 50 MG, 1X/DAY
     Dates: start: 201807
  6. ATORVASTATIN [Concomitant]
     Active Substance: ATORVASTATIN
     Dosage: 10 MG, 1X/DAY
     Dates: start: 201805
  7. DULOXETINE [Concomitant]
     Active Substance: DULOXETINE
     Indication: Pain
     Dosage: 60 MG, 1X/DAY
     Dates: start: 201401, end: 201905
  8. LANSOPRAZOLE [Concomitant]
     Active Substance: LANSOPRAZOLE
     Dosage: 30 MG, 1X/DAY
     Dates: start: 201810, end: 201906
  9. RAMIPRIL [Concomitant]
     Active Substance: RAMIPRIL
     Indication: Hypertension
     Dosage: 25 MG, 1X/DAY
     Dates: start: 201609, end: 201805

REACTIONS (13)
  - Suicidal ideation [Recovered/Resolved]
  - Overdose [Recovered/Resolved]
  - Seizure [Not Recovered/Not Resolved]
  - Withdrawal syndrome [Unknown]
  - Petit mal epilepsy [Not Recovered/Not Resolved]
  - Depression [Recovered/Resolved]
  - Chills [Not Recovered/Not Resolved]
  - Anxiety [Recovered/Resolved]
  - Hyperhidrosis [Not Recovered/Not Resolved]
  - Tinnitus [Not Recovered/Not Resolved]
  - Dyskinesia [Unknown]
  - Drug ineffective for unapproved indication [Recovered/Resolved]
  - Off label use [Recovered/Resolved]

NARRATIVE: CASE EVENT DATE: 20160701
